FAERS Safety Report 5396754-0 (Version None)
Quarter: 2007Q3

REPORT INFORMATION
  Report Type: 
  Country: None (occurrence: None)
  Receive Date: 20070725
  Receipt Date: 20070716
  Transmission Date: 20080115
  Serious: Yes (Other)
  Sender: FDA-Public Use
  Company Number: HQWYE086117JUL07

PATIENT
  Age: 55 Year
  Sex: Male

DRUGS (5)
  1. INDERAL [Suspect]
     Indication: HYPERTENSION
     Route: 048
     Dates: start: 20061101
  2. OMEPRAZOLE [Concomitant]
     Dosage: UNKNOWN
     Route: 048
     Dates: start: 20061101
  3. SIMVASTATIN [Concomitant]
     Indication: HYPERCHOLESTEROLAEMIA
     Dosage: UNKNOWN
     Route: 048
     Dates: start: 20061101
  4. ATACAND [Suspect]
     Indication: HYPERTENSION
     Dosage: 16/12.5 MG DAILY
     Route: 048
     Dates: start: 20020101
  5. PROPATYLNITRATE [Concomitant]
     Dosage: UNKNOWN
     Route: 048
     Dates: start: 20061101

REACTIONS (4)
  - BACK PAIN [None]
  - BLOOD PRESSURE INCREASED [None]
  - GASTRITIS [None]
  - INFARCTION [None]
